FAERS Safety Report 5317598-1 (Version None)
Quarter: 2007Q2

REPORT INFORMATION
  Report Type: 
  Country: None (occurrence: None)
  Receive Date: 20070507
  Receipt Date: 20070424
  Transmission Date: 20071010
  Serious: Yes (Other)
  Sender: FDA-Public Use
  Company Number: PHRM2007FR01336

PATIENT
  Sex: Female

DRUGS (2)
  1. GLEEVEC [Suspect]
     Dosage: 600 MG PER DAY
     Route: 048
  2. AZATHIOPRINE SODIUM [Suspect]
     Indication: AUTOIMMUNE HEPATITIS
     Route: 048

REACTIONS (4)
  - AUTOIMMUNE HEPATITIS [None]
  - DRUG INEFFECTIVE [None]
  - DRUG INTERACTION [None]
  - DRUG LEVEL BELOW THERAPEUTIC [None]
